FAERS Safety Report 15133661 (Version 1)
Quarter: 2018Q3

REPORT INFORMATION
  Report Type: Other
  Country: FR (occurrence: FR)
  Receive Date: 20180712
  Receipt Date: 20180712
  Transmission Date: 20181010
  Serious: Yes (Death)
  Sender: FDA-Public Use
  Company Number: FR-AJANTA PHARMA USA INC.-2051851

PATIENT
  Age: 80 Year
  Sex: Male

DRUGS (3)
  1. AZITHROMYCIN MONOHYDRATE. [Suspect]
     Active Substance: AZITHROMYCIN MONOHYDRATE
  2. PONATINIB [Suspect]
     Active Substance: PONATINIB
  3. VORICONAZOLE. [Suspect]
     Active Substance: VORICONAZOLE
     Indication: BRONCHOPULMONARY ASPERGILLOSIS

REACTIONS (4)
  - Hepatotoxicity [Fatal]
  - Drug interaction [Fatal]
  - Toxicity to various agents [Fatal]
  - Acute hepatic failure [Fatal]
